FAERS Safety Report 18467190 (Version 1)
Quarter: 2020Q4

REPORT INFORMATION
  Report Type: Spontaneous
  Country: US (occurrence: US)
  Receive Date: 20201105
  Receipt Date: 20201105
  Transmission Date: 20210114
  Serious: No
  Sender: FDA-Public Use
  Company Number: US-LUPIN PHARMACEUTICALS INC.-2020-07916

PATIENT
  Age: 32 Year
  Sex: Female

DRUGS (2)
  1. CLONAZEPAM. [Concomitant]
     Active Substance: CLONAZEPAM
     Indication: TOURETTE^S DISORDER
     Dosage: 0.5 MILLIGRAM, BID
     Route: 048
  2. TETRABENAZINE. [Suspect]
     Active Substance: TETRABENAZINE
     Indication: DRUG THERAPY
     Dosage: 12.5 MILLIGRAM (RECEIVED THRICE DAILY)
     Route: 048

REACTIONS (2)
  - Anxiety [Unknown]
  - Drug intolerance [Unknown]
